FAERS Safety Report 14646480 (Version 1)
Quarter: 2018Q1

REPORT INFORMATION
  Report Type: Report from Study
  Country: US (occurrence: US)
  Receive Date: 20180316
  Receipt Date: 20180316
  Transmission Date: 20180509
  Serious: Yes (Other)
  Sender: FDA-Public Use
  Company Number: US-BRISTOL-MYERS SQUIBB COMPANY-BMS-2018-022525

PATIENT
  Age: 53 Year
  Sex: Female

DRUGS (1)
  1. NIVOLUMAB [Suspect]
     Active Substance: NIVOLUMAB
     Indication: NON-SMALL CELL LUNG CANCER
     Route: 065

REACTIONS (6)
  - Chromaturia [Unknown]
  - Urine odour abnormal [Unknown]
  - Muscle spasms [Unknown]
  - Insomnia [Unknown]
  - Contusion [Unknown]
  - Hepatic enzyme increased [Unknown]
